FAERS Safety Report 9270187 (Version 1)
Quarter: 2013Q2

REPORT INFORMATION
  Report Type: Other
  Country: GB (occurrence: GB)
  Receive Date: 20130503
  Receipt Date: 20130503
  Transmission Date: 20140414
  Serious: Yes (Disabling, Other)
  Sender: FDA-Public Use
  Company Number: GB-WATSON-2013-07375

PATIENT
  Age: 37 Year
  Sex: Male
  Weight: 71 kg

DRUGS (1)
  1. LEVETIRACETAM (UNKNOWN) [Suspect]
     Indication: EPILEPSY
     Dosage: 2000MG
     Route: 048
     Dates: start: 20130211, end: 20130325

REACTIONS (6)
  - Epilepsy [Recovered/Resolved with Sequelae]
  - Decreased appetite [Recovered/Resolved with Sequelae]
  - Dizziness [Recovered/Resolved with Sequelae]
  - Fatigue [Recovered/Resolved with Sequelae]
  - Influenza like illness [Recovered/Resolved with Sequelae]
  - Product substitution issue [Unknown]
